FAERS Safety Report 7597063-1 (Version None)
Quarter: 2011Q3

REPORT INFORMATION
  Report Type: 
  Country: None (occurrence: None)
  Receive Date: 20110708
  Receipt Date: 20110630
  Transmission Date: 20111222
  Serious: Yes (Other)
  Sender: FDA-Public Use
  Company Number: HU-PFIZER INC-2011147632

PATIENT
  Age: 81 Year
  Sex: Female
  Weight: 78 kg

DRUGS (6)
  1. BISOPROLOL FUMARATE [Concomitant]
     Dosage: UNK
     Dates: start: 20090101
  2. ADEXOR [Concomitant]
     Dosage: UNK
     Dates: start: 20090101
  3. INDAPAMIDE [Concomitant]
     Dosage: UNK
     Dates: start: 20100101
  4. LYRICA [Suspect]
     Dosage: 150 MG, 2X/DAY
     Dates: start: 20110301
  5. XANAX [Concomitant]
     Dosage: UNK
     Dates: start: 20050101
  6. TENOX [Concomitant]
     Dosage: UNK
     Dates: start: 20100101

REACTIONS (2)
  - JOINT SWELLING [None]
  - PAIN IN EXTREMITY [None]
